FAERS Safety Report 18756517 (Version 1)
Quarter: 2021Q1

REPORT INFORMATION
  Report Type: Spontaneous
  Country: IT (occurrence: IT)
  Receive Date: 20210119
  Receipt Date: 20210119
  Transmission Date: 20210419
  Serious: Yes (Hospitalization)
  Sender: FDA-Public Use
  Company Number: IT-PFIZER INC-2021027133

PATIENT
  Age: 47 Year
  Sex: Female

DRUGS (2)
  1. SIRDALUD [Suspect]
     Active Substance: TIZANIDINE
     Indication: SUICIDE ATTEMPT
     Dosage: 4 DF, SINGLE
     Route: 048
     Dates: start: 20210101, end: 20210101
  2. TAVOR (LORAZEPAM) [Suspect]
     Active Substance: LORAZEPAM
     Indication: SUICIDE ATTEMPT
     Dosage: 4 DF, SINGLE
     Route: 048
     Dates: start: 20210101, end: 20210101

REACTIONS (4)
  - Depressed level of consciousness [Recovering/Resolving]
  - Suicide attempt [Recovering/Resolving]
  - Intentional overdose [Recovering/Resolving]
  - Hypotension [Recovering/Resolving]

NARRATIVE: CASE EVENT DATE: 20210101
